FAERS Safety Report 21359223 (Version 1)
Quarter: 2022Q3

REPORT INFORMATION
  Report Type: Spontaneous
  Country: FR (occurrence: FR)
  Receive Date: 20220921
  Receipt Date: 20220921
  Transmission Date: 20221026
  Serious: Yes (Other)
  Sender: FDA-Public Use
  Company Number: None

PATIENT
  Age: 40 Year
  Sex: Male
  Weight: 164 kg

DRUGS (16)
  1. ACETAMINOPHEN [Suspect]
     Active Substance: ACETAMINOPHEN
     Indication: Pain
     Dosage: UNK
     Route: 042
     Dates: start: 20191101, end: 20191101
  2. PROPOFOL [Suspect]
     Active Substance: PROPOFOL
     Indication: Sedation
     Dosage: 50 MG, QD
     Route: 042
     Dates: start: 20191101, end: 20191101
  3. AMOXICILLIN TRIHYDRATE [Suspect]
     Active Substance: AMOXICILLIN
     Indication: Antibiotic prophylaxis
     Dosage: 2 G, QD
     Route: 042
     Dates: start: 20191101, end: 20191101
  4. SUCCINYLCHOLINE [Suspect]
     Active Substance: SUCCINYLCHOLINE
     Indication: Sedation
     Dosage: UNK
     Route: 065
     Dates: start: 20191101, end: 20191101
  5. ACUPAN [Suspect]
     Active Substance: NEFOPAM HYDROCHLORIDE
     Indication: Pain
     Dosage: UNK
     Route: 042
     Dates: start: 20191101, end: 20191101
  6. CALCIUM CHLORIDE\MAGNESIUM CHLORIDE\MALIC ACID\POTASSIUM CHLORIDE\SODI [Suspect]
     Active Substance: CALCIUM CHLORIDE\MAGNESIUM CHLORIDE\MALIC ACID\POTASSIUM CHLORIDE\SODIUM ACETATE\SODIUM CHLORIDE
     Indication: Blood volume expansion
     Dosage: UNK
     Route: 042
     Dates: start: 20191101, end: 20191101
  7. SUFENTANIL [Suspect]
     Active Substance: SUFENTANIL
     Indication: Sedation
     Dosage: 32 ?G, QD
     Route: 042
     Dates: start: 20191101, end: 20191101
  8. TRANEXAMIC ACID [Suspect]
     Active Substance: TRANEXAMIC ACID
     Indication: Procedural haemorrhage
     Dosage: UNK
     Route: 042
     Dates: start: 20191101, end: 20191101
  9. ETOMIDATE [Suspect]
     Active Substance: ETOMIDATE
     Indication: Sedation
     Dosage: UNK
     Route: 065
     Dates: start: 20191101, end: 20191101
  10. KETAMINE [Suspect]
     Active Substance: KETAMINE
     Indication: Sedation
     Dosage: UNK
     Route: 065
     Dates: start: 20191101, end: 20191101
  11. ROCURONIUM BROMIDE [Suspect]
     Active Substance: ROCURONIUM BROMIDE
     Indication: Sedation
     Dosage: UNK
     Route: 065
     Dates: start: 20191101, end: 20191101
  12. PAROXETINE [Concomitant]
     Active Substance: PAROXETINE
     Indication: Product used for unknown indication
     Dosage: UNK
     Route: 065
  13. DIAZEPAM [Concomitant]
     Active Substance: DIAZEPAM
     Indication: Product used for unknown indication
     Dosage: UNK
     Route: 065
  14. ZOPICLONE [Concomitant]
     Active Substance: ZOPICLONE
     Indication: Product used for unknown indication
     Dosage: UNK
     Route: 065
  15. LOXAPINE [Concomitant]
     Active Substance: LOXAPINE
     Indication: Product used for unknown indication
     Dosage: UNK
     Route: 065
  16. TROPATEPINE HYDROCHLORIDE [Concomitant]
     Active Substance: TROPATEPINE HYDROCHLORIDE
     Indication: Product used for unknown indication
     Dosage: UNK
     Route: 065

REACTIONS (4)
  - Anaphylactic shock [Recovered/Resolved]
  - Anaphylactoid reaction [Recovered/Resolved]
  - Hypotension [Recovered/Resolved]
  - Urticaria [Recovered/Resolved]

NARRATIVE: CASE EVENT DATE: 20191101
